FAERS Safety Report 26210548 (Version 1)
Quarter: 2025Q4

REPORT INFORMATION
  Report Type: Report from Study
  Country: US (occurrence: US)
  Receive Date: 20251230
  Receipt Date: 20251230
  Transmission Date: 20260118
  Serious: Yes (Other)
  Sender: ALEXION PHARMACEUTICALS
  Company Number: US-AstraZeneca-CH-01022130A

PATIENT
  Sex: Male

DRUGS (1)
  1. EPLONTERSEN SODIUM [Suspect]
     Active Substance: EPLONTERSEN SODIUM
     Dosage: 45 MILLIGRAM, Q4W

REACTIONS (7)
  - Atrial fibrillation [Unknown]
  - Fluid retention [Unknown]
  - Weight increased [Unknown]
  - Joint swelling [Unknown]
  - Peripheral swelling [Unknown]
  - Weight decreased [Unknown]
  - Muscle spasms [Unknown]
